FAERS Safety Report 26069449 (Version 1)
Quarter: 2025Q4

REPORT INFORMATION
  Report Type: Spontaneous
  Country: EU (occurrence: EU)
  Receive Date: 20251120
  Receipt Date: 20251120
  Transmission Date: 20260117
  Serious: Yes (Other)
  Sender: BAYER HEALTHCARE LLC
  Company Number: EU-BAYER-2025A151343

PATIENT
  Age: 56 Year
  Sex: Female

DRUGS (2)
  1. NAPROXEN SODIUM [Suspect]
     Active Substance: NAPROXEN SODIUM
     Indication: Rheumatoid arthritis
     Dosage: UNK
  2. NEBIVOLOL [Suspect]
     Active Substance: NEBIVOLOL
     Indication: Migraine

REACTIONS (1)
  - Colitis microscopic [None]
